FAERS Safety Report 16055419 (Version 1)
Quarter: 2019Q1

REPORT INFORMATION
  Report Type: Report from Study
  Country: CZ (occurrence: CZ)
  Receive Date: 20190311
  Receipt Date: 20190311
  Transmission Date: 20190418
  Serious: Yes (Other)
  Sender: FDA-Public Use
  Company Number: CZ-ROCHE-1775278

PATIENT

DRUGS (3)
  1. BENDAMUSTINE [Suspect]
     Active Substance: BENDAMUSTINE
     Indication: CHRONIC LYMPHOCYTIC LEUKAEMIA
     Dosage: ON DAYS 1 AND 2
     Route: 042
  2. RITUXIMAB. [Suspect]
     Active Substance: RITUXIMAB
     Indication: CHRONIC LYMPHOCYTIC LEUKAEMIA
     Dosage: ON DAY 0 OF THE FIRST COURSE
     Route: 042
  3. RITUXIMAB. [Suspect]
     Active Substance: RITUXIMAB
     Dosage: ON DAY 1 DURING SUBSEQUENT COURSES EVERY 28 DAYS FOR A MAXIMUM OF SIX CYCLES
     Route: 042

REACTIONS (14)
  - Hypersensitivity [Unknown]
  - Tumour lysis syndrome [Unknown]
  - Neutropenia [Unknown]
  - Thrombocytopenia [Unknown]
  - Infection [Unknown]
  - Rash [Unknown]
  - Haemolysis [Unknown]
  - Pneumonia [Unknown]
  - Acute coronary syndrome [Unknown]
  - Anaemia [Unknown]
  - Fungal oesophagitis [Unknown]
  - Urinary tract infection [Unknown]
  - Febrile neutropenia [Unknown]
  - Embolism [Unknown]
